FAERS Safety Report 5251472-4 (Version None)
Quarter: 2007Q1

REPORT INFORMATION
  Report Type: 
  Country: None (occurrence: None)
  Receive Date: 20070228
  Receipt Date: 20060515
  Transmission Date: 20070707
  Serious: Yes (Hospitalization)
  Sender: FDA-Public Use
  Company Number: US-GLAXOSMITHKLINE-A0605621A

PATIENT
  Sex: Female

DRUGS (5)
  1. LAMICTAL [Suspect]
     Indication: BIPOLAR DISORDER
     Dosage: 300MG PER DAY
     Route: 048
  2. ATIVAN [Concomitant]
  3. TRAZODONE HCL [Concomitant]
  4. PROZAC [Concomitant]
  5. CONCERTA [Concomitant]

REACTIONS (1)
  - RASH [None]
